FAERS Safety Report 7905924-6 (Version None)
Quarter: 2011Q4

REPORT INFORMATION
  Report Type: 
  Country: None (occurrence: None)
  Receive Date: 20111110
  Receipt Date: 20111107
  Transmission Date: 20120403
  Serious: Yes (Death)
  Sender: FDA-Public Use
  Company Number: US-PFIZER INC-2011245197

PATIENT
  Sex: Male
  Weight: 97.5 kg

DRUGS (5)
  1. ATROPINE SULFATE [Suspect]
     Dosage: UNK
  2. OXYCONTIN [Suspect]
     Dosage: UNK
  3. NORPROPOXYPHENE [Suspect]
     Dosage: UNK
  4. PROPOXYPHENE HYDROCHLORIDE [Suspect]
  5. OXYMORPHONE [Suspect]
     Dosage: UNK

REACTIONS (1)
  - TOXICITY TO VARIOUS AGENTS [None]
